FAERS Safety Report 14481526 (Version 2)
Quarter: 2019Q1

REPORT INFORMATION
  Report Type: Report from Study
  Country: US (occurrence: US)
  Receive Date: 20180202
  Receipt Date: 20190125
  Transmission Date: 20190417
  Serious: Yes (Death, Other)
  Sender: FDA-Public Use
  Company Number: US-PFIZER INC-2018045811

PATIENT
  Age: 68 Year
  Sex: Male

DRUGS (5)
  1. DOXORUBICIN HCL [Suspect]
     Active Substance: DOXORUBICIN HYDROCHLORIDE
     Indication: HODGKIN^S DISEASE
     Dosage: UNK, CYCLIC (6 CYCLES (12 DOSES))
  2. DACARBAZINE. [Suspect]
     Active Substance: DACARBAZINE
     Indication: HODGKIN^S DISEASE
     Dosage: UNK, CYCLIC (6 CYCLES (12 DOSES))
  3. BMS-936558 [Suspect]
     Active Substance: NIVOLUMAB
     Indication: HODGKIN^S DISEASE
     Dosage: 240 MG, CYCLIC (BIWEEKLY MONOTHERAPY (240 MG IV FLAT DOSE))
     Route: 042
  4. VINBLASTINE [Suspect]
     Active Substance: VINBLASTINE
     Indication: HODGKIN^S DISEASE
     Dosage: UNK, CYCLIC (6 CYCLES (12 DOSES))
  5. BMS-936558 [Suspect]
     Active Substance: NIVOLUMAB
     Dosage: 240 MG, CYCLIC (6 CYCLES (12 DOSES))
     Route: 042

REACTIONS (3)
  - Febrile neutropenia [Unknown]
  - Klebsiella bacteraemia [Unknown]
  - Acute respiratory failure [Fatal]
